FAERS Safety Report 4625107-5 (Version None)
Quarter: 2005Q2

REPORT INFORMATION
  Report Type: 
  Country: None (occurrence: None)
  Receive Date: 20050325
  Receipt Date: 20050222
  Transmission Date: 20051028
  Serious: No
  Sender: FDA-Public Use
  Company Number: US_0412108837

PATIENT
  Age: 79 Year
  Sex: Female
  Weight: 59 kg

DRUGS (3)
  1. EVISTA [Suspect]
  2. FORTEO [Suspect]
     Indication: OSTEOPOROSIS
     Dosage: 20 UG/1 DAY
     Dates: start: 20050121
  3. TAPAZOLE [Concomitant]

REACTIONS (6)
  - DIZZINESS [None]
  - INJECTION SITE HAEMORRHAGE [None]
  - IRRITABLE BOWEL SYNDROME [None]
  - MUSCLE SPASMS [None]
  - NAUSEA [None]
  - VOMITING [None]
